FAERS Safety Report 6366275-7 (Version None)
Quarter: 2009Q3

REPORT INFORMATION
  Report Type: 
  Country: None (occurrence: None)
  Receive Date: 20090915
  Receipt Date: 20090902
  Transmission Date: 20100115
  Serious: Yes (Hospitalization)
  Sender: FDA-Public Use
  Company Number: 2009AP003387

PATIENT
  Age: 79 Year
  Sex: Female

DRUGS (4)
  1. RISPERIDONE [Suspect]
     Indication: PSYCHOTIC DISORDER
     Dosage: 6 MG;UNKNOWN;UNKNOWN
  2. HALOPERIDOL [Suspect]
     Indication: PSYCHOTIC DISORDER
     Dosage: 10 MG;UNKNOWN;UNKNOWN
  3. OLANZAPINE [Suspect]
     Indication: PSYCHOTIC DISORDER
     Dosage: 15 MG;UNKNOWN;UNKNOWN
  4. QUETIAPINE FUMARATE [Suspect]
     Dosage: 25 MG;UNKNOWN;Q8H;UNKNOWN

REACTIONS (5)
  - ABASIA [None]
  - ACTIVITIES OF DAILY LIVING IMPAIRED [None]
  - COGWHEEL RIGIDITY [None]
  - DYSKINESIA [None]
  - NO THERAPEUTIC RESPONSE [None]
